FAERS Safety Report 23411195 (Version 1)
Quarter: 2024Q1

REPORT INFORMATION
  Report Type: Spontaneous
  Country: US (occurrence: US)
  Receive Date: 20240117
  Receipt Date: 20240117
  Transmission Date: 20240410
  Serious: No
  Sender: FDA-Public Use
  Company Number: US-FERRINGPH-2023FE01411

PATIENT
  Age: 36 Year
  Sex: Female
  Weight: 49.887 kg

DRUGS (1)
  1. CLENPIQ [Suspect]
     Active Substance: ANHYDROUS CITRIC ACID\MAGNESIUM OXIDE\SODIUM PICOSULFATE
     Indication: Bowel preparation
     Route: 065

REACTIONS (6)
  - Dyschezia [Unknown]
  - Proctalgia [Unknown]
  - Anal incontinence [Unknown]
  - Tooth injury [Unknown]
  - Loose tooth [Unknown]
  - Product packaging difficult to open [Unknown]

NARRATIVE: CASE EVENT DATE: 20230301
